FAERS Safety Report 4675552-7 (Version None)
Quarter: 2005Q2

REPORT INFORMATION
  Report Type: 
  Country: None (occurrence: None)
  Receive Date: 20050527
  Receipt Date: 20050411
  Transmission Date: 20051028
  Serious: No
  Sender: FDA-Public Use
  Company Number: US-BRISTOL-MYERS SQUIBB COMPANY-12928719

PATIENT
  Age: 16 Year
  Sex: Female

DRUGS (1)
  1. ABILIFY [Suspect]
     Dosage: 5 MG 3 WEEKS AGO, THEN INCR TO 10 MG 2 WEEKS AGO WHICH CONTINUES

REACTIONS (1)
  - HYPOTHYROIDISM [None]
